FAERS Safety Report 19868999 (Version 1)
Quarter: 2021Q3

REPORT INFORMATION
  Report Type: Report from Study
  Country: AT (occurrence: AT)
  Receive Date: 20210923
  Receipt Date: 20210923
  Transmission Date: 20211014
  Serious: Yes (Hospitalization, Other)
  Sender: FDA-Public Use
  Company Number: AT-CELLTRION INC.-2021AT008282

PATIENT

DRUGS (19)
  1. PANTOLOC [Concomitant]
     Active Substance: PANTOPRAZOLE SODIUM
     Dosage: ONGOING = CHECKED
  2. PARACETAMOL [Concomitant]
     Active Substance: ACETAMINOPHEN
     Dosage: UNK
     Dates: start: 20181219, end: 20181219
  3. SIMVASTATIN. [Concomitant]
     Active Substance: SIMVASTATIN
     Dosage: ONGOING = CHECKED
  4. TRASTUZUMAB. [Suspect]
     Active Substance: TRASTUZUMAB
     Dosage: 288.2 MG, EVERY 4 WEEKS
     Route: 042
     Dates: start: 20181219
  5. LETROZOLE. [Suspect]
     Active Substance: LETROZOLE
     Indication: BREAST CANCER METASTATIC
     Dosage: 2.5 MG, DAILY
     Route: 048
     Dates: start: 20181121
  6. ADAMON [TRAMADOL HYDROCHLORIDE] [Concomitant]
     Dosage: ONGOING = CHECKED
     Dates: start: 20201015
  7. ULSAL [Concomitant]
     Active Substance: RANITIDINE HYDROCHLORIDE
     Dosage: ONGOING = CHECKED
  8. PREGABALIN ACC [Concomitant]
     Dosage: ONGOING = CHECKED
     Dates: start: 20201015
  9. TRASTUZUMAB. [Suspect]
     Active Substance: TRASTUZUMAB
     Indication: BREAST CANCER METASTATIC
     Dosage: 288.2 MG, EVERY 4 WEEKS (MOST RECENT DOSE PRIOR TO THE EVENT: 19/DEC/2018)
     Route: 042
     Dates: start: 20181128, end: 20181128
  10. DENOSUMAB [Suspect]
     Active Substance: DENOSUMAB
     Indication: BREAST CANCER METASTATIC
     Dosage: 120 MG, EVERY 4 WEEKS (MOST RECENT DOSE PRIOR TO AE /JAN/2021)
     Route: 058
     Dates: start: 20181106
  11. VITAMINS WITH MINERALS [Concomitant]
     Active Substance: MINERALS\VITAMINS
     Dosage: ONGOING = CHECKED
  12. ASCORBIC ACID;CALCIUM PHOSPHATE;CITRIC ACID;COLECALCIFEROL [Concomitant]
     Dosage: ONGOING = CHECKED
     Dates: start: 20201015
  13. CANDESARTAN. [Concomitant]
     Active Substance: CANDESARTAN
     Dosage: ONGOING = CHECKED
     Dates: start: 20201015
  14. NOMEXOR [Concomitant]
     Active Substance: NEBIVOLOL HYDROCHLORIDE
  15. ITERIUM [Concomitant]
     Active Substance: RILMENIDINE
     Dosage: ONGOING = CHECKED
  16. CANDESARTAN CILEXETIL AND HYDROCHLOROTHIAZIDE [Concomitant]
     Active Substance: CANDESARTAN CILEXETIL\HYDROCHLOROTHIAZIDE
  17. CALMOLAN [Concomitant]
     Dosage: ONGOING = CHECKED
  18. MIRTABENE [Concomitant]
     Active Substance: MIRTAZAPINE
     Dosage: ONGOING = CHECKED
     Dates: start: 20201015
  19. TRAMAL [Concomitant]
     Active Substance: TRAMADOL
     Dosage: ONGOING = CHECKED
     Dates: start: 20201015

REACTIONS (3)
  - Off label use [Unknown]
  - Osteonecrosis of jaw [Not Recovered/Not Resolved]
  - Infusion related reaction [Recovered/Resolved]

NARRATIVE: CASE EVENT DATE: 20181128
